FAERS Safety Report 11537428 (Version 2)
Quarter: 2015Q4

REPORT INFORMATION
  Report Type: Spontaneous
  Country: US (occurrence: US)
  Receive Date: 20150922
  Receipt Date: 20151013
  Transmission Date: 20160304
  Serious: No
  Sender: FDA-Public Use
  Company Number: US-PFIZER INC-2015307065

PATIENT
  Age: 65 Year
  Sex: Female
  Weight: 46 kg

DRUGS (2)
  1. LYRICA [Suspect]
     Active Substance: PREGABALIN
     Indication: ORTHOSTATIC TREMOR
     Dosage: 50 MG, 1X/DAY
     Route: 048
     Dates: start: 20150902
  2. CLONAZEPAM. [Concomitant]
     Active Substance: CLONAZEPAM
     Indication: ORTHOSTATIC TREMOR
     Dosage: 1 MG, 2X/DAY

REACTIONS (2)
  - Drug ineffective for unapproved indication [Unknown]
  - Insomnia [Unknown]
